FAERS Safety Report 25974447 (Version 1)
Quarter: 2025Q4

REPORT INFORMATION
  Report Type: Spontaneous
  Country: US (occurrence: None)
  Receive Date: 20251029
  Receipt Date: 20251029
  Transmission Date: 20260118
  Serious: Yes (Life-Threatening)
  Sender: FDA-CTU
  Company Number: None

PATIENT
  Age: 72 Year
  Sex: Female
  Weight: 65.7 kg

DRUGS (5)
  1. PROLIA [Suspect]
     Active Substance: DENOSUMAB
     Indication: Osteoporosis
     Dosage: OTHER FREQUENCY : EVERY 6 MONTHS;?OTHER ROUTE : GIVEN SUBQ;?
     Route: 050
  2. RECLAST [Suspect]
     Active Substance: ZOLEDRONIC ACID
  3. WARFARIN [Concomitant]
     Active Substance: WARFARIN
  4. TRAMADOL [Concomitant]
     Active Substance: TRAMADOL
  5. ALENDRONATE [Concomitant]
     Active Substance: ALENDRONATE SODIUM

REACTIONS (9)
  - Influenza like illness [None]
  - Nausea [None]
  - Vomiting [None]
  - Vertigo [None]
  - Bone pain [None]
  - Myalgia [None]
  - Anaemia [None]
  - Arthralgia [None]
  - Pulmonary embolism [None]

NARRATIVE: CASE EVENT DATE: 20241209
